FAERS Safety Report 7564290-9 (Version None)
Quarter: 2011Q2

REPORT INFORMATION
  Report Type: 
  Country: None (occurrence: None)
  Receive Date: 20110622
  Receipt Date: 20110318
  Transmission Date: 20111010
  Serious: No
  Sender: FDA-Public Use
  Company Number: US-ALLERGAN-1103920US

PATIENT
  Age: 77 Year
  Sex: Female

DRUGS (1)
  1. LUMIGAN [Suspect]
     Indication: ABNORMAL SENSATION IN EYE
     Dosage: 1 GTT, SINGLE
     Route: 047
     Dates: start: 20110317, end: 20110317

REACTIONS (2)
  - PALPITATIONS [None]
  - EXTRASYSTOLES [None]
